FAERS Safety Report 5103053-0 (Version None)
Quarter: 2006Q3

REPORT INFORMATION
  Report Type: 
  Country: None (occurrence: None)
  Receive Date: 20060907
  Receipt Date: 20060823
  Transmission Date: 20061208
  Serious: Yes (Life-Threatening, Hospitalization)
  Sender: FDA-Public Use
  Company Number: 13683

PATIENT
  Age: 72 Year
  Sex: Female

DRUGS (2)
  1. CARBOPLATIN [Suspect]
     Indication: PALLIATIVE CARE
     Dosage: 180 MG WEEKLY IV
     Route: 042
     Dates: start: 20050805, end: 20050826
  2. PACLITAXEL [Suspect]
     Indication: PALLIATIVE CARE
     Dosage: 135 MG WEEKLY IV
     Route: 042
     Dates: start: 20050805, end: 20051031

REACTIONS (4)
  - BRADYCARDIA [None]
  - CARDIAC ARREST [None]
  - COMA [None]
  - ERYTHEMA [None]
